FAERS Safety Report 13721109 (Version 1)
Quarter: 2017Q3

REPORT INFORMATION
  Report Type: Spontaneous
  Country: FR (occurrence: FR)
  Receive Date: 20170706
  Receipt Date: 20170706
  Transmission Date: 20171127
  Serious: Yes (Other)
  Sender: FDA-Public Use
  Company Number: FR-BAYER-2017-127046

PATIENT
  Age: 45 Year
  Sex: Female
  Weight: 115 kg

DRUGS (1)
  1. MIRENA [Suspect]
     Active Substance: LEVONORGESTREL
     Indication: CONTRACEPTION
     Dosage: 20 MCG/24HR, CONT
     Route: 015
     Dates: start: 20130118

REACTIONS (22)
  - Weight increased [Unknown]
  - Stress [Unknown]
  - Irritability [Unknown]
  - Fatigue [Unknown]
  - Anxiety [Unknown]
  - Mood swings [Unknown]
  - Aggression [Unknown]
  - Loss of libido [Unknown]
  - Adnexa uteri pain [Unknown]
  - Visual impairment [Unknown]
  - Myalgia [Unknown]
  - Vertigo [Not Recovered/Not Resolved]
  - Ligament pain [Unknown]
  - Paraesthesia [Unknown]
  - Nausea [Unknown]
  - Amnesia [Unknown]
  - Headache [Unknown]
  - Nervousness [Unknown]
  - Depression [Unknown]
  - Constipation [Unknown]
  - Diarrhoea [Unknown]
  - Disturbance in attention [Unknown]

NARRATIVE: CASE EVENT DATE: 201307
